FAERS Safety Report 8206618-2 (Version None)
Quarter: 2012Q1

REPORT INFORMATION
  Report Type: 
  Country: None (occurrence: None)
  Receive Date: 20120314
  Receipt Date: 20120305
  Transmission Date: 20120608
  Serious: Yes (Death, Other)
  Sender: FDA-Public Use
  Company Number: JP-BRISTOL-MYERS SQUIBB COMPANY-16301210

PATIENT
  Age: 50 Year
  Sex: Female

DRUGS (3)
  1. RISPERIDONE [Concomitant]
  2. QUETIAPINE FUMARATE [Concomitant]
  3. ABILIFY [Suspect]
     Indication: PARANOID PERSONALITY DISORDER
     Dosage: STARTED AT 3MG/DAY AND INCREASED TO 18MG/DAY IN SEP11.
     Route: 048
     Dates: start: 20110901, end: 20111027

REACTIONS (4)
  - RENAL INFARCT [None]
  - RESTLESSNESS [None]
  - MYOCARDIAL INFARCTION [None]
  - PERSECUTORY DELUSION [None]
